FAERS Safety Report 22234249 (Version 1)
Quarter: 2023Q2

REPORT INFORMATION
  Report Type: Spontaneous
  Country: US (occurrence: None)
  Receive Date: 20230418
  Receipt Date: 20230418
  Transmission Date: 20230722
  Serious: Yes (Other)
  Sender: FDA-Public Use
  Company Number: None

PATIENT
  Age: 85 Year
  Sex: Female
  Weight: 81.65 kg

DRUGS (1)
  1. VENLAFAXINE [Suspect]
     Active Substance: VENLAFAXINE HYDROCHLORIDE
     Indication: Major depression
     Dosage: 150MG DAILY ORAL?
     Route: 048
     Dates: start: 20230227, end: 20230323

REACTIONS (3)
  - Product substitution issue [None]
  - Disturbance in attention [None]
  - Mobility decreased [None]

NARRATIVE: CASE EVENT DATE: 20230323
